FAERS Safety Report 24437440 (Version 1)
Quarter: 2024Q4

REPORT INFORMATION
  Report Type: Spontaneous
  Country: US (occurrence: US)
  Receive Date: 20241015
  Receipt Date: 20241015
  Transmission Date: 20250114
  Serious: Yes (Death, Hospitalization)
  Sender: LUPIN
  Company Number: US-LUPIN PHARMACEUTICALS INC.-2024-09831

PATIENT

DRUGS (6)
  1. VANCOMYCIN [Suspect]
     Active Substance: VANCOMYCIN
     Indication: Toxic shock syndrome streptococcal
     Dosage: UNK
     Route: 065
  2. DOXYCYCLINE [Suspect]
     Active Substance: DOXYCYCLINE
     Indication: Toxic shock syndrome streptococcal
     Dosage: UNK
     Route: 065
  3. LINEZOLID [Suspect]
     Active Substance: LINEZOLID
     Indication: Toxic shock syndrome streptococcal
     Dosage: UNK
     Route: 065
  4. CEFEPIME [Suspect]
     Active Substance: CEFEPIME HYDROCHLORIDE
     Indication: Toxic shock syndrome streptococcal
     Dosage: UNK
     Route: 065
  5. IMMUNE GLOBULIN NOS [Suspect]
     Active Substance: IMMUNE GLOBULIN NOS
     Indication: Toxic shock syndrome streptococcal
     Dosage: UNK
     Route: 065
  6. OSELTAMIVIR [Concomitant]
     Active Substance: OSELTAMIVIR
     Indication: Influenza
     Dosage: UNK
     Route: 065

REACTIONS (2)
  - Drug ineffective for unapproved indication [Fatal]
  - Off label use [Unknown]
